FAERS Safety Report 10729771 (Version 3)
Quarter: 2015Q1

REPORT INFORMATION
  Report Type: Spontaneous
  Country: US (occurrence: US)
  Receive Date: 20150122
  Receipt Date: 20150317
  Transmission Date: 20150721
  Serious: No
  Sender: FDA-Public Use
  Company Number: US-CELGENEUS-163-21880-13033150

PATIENT
  Sex: Female
  Weight: 46 kg

DRUGS (9)
  1. ATIVAN [Concomitant]
     Active Substance: LORAZEPAM
     Indication: PRODUCT USED FOR UNKNOWN INDICATION
     Route: 065
  2. FLUZONE [Concomitant]
     Active Substance: INFLUENZA A VIRUS A/CALIFORNIA/7/2009 X-179A (H1N1) ANTIGEN (FORMALDEHYDE INACTIVATED)\INFLUENZA A VIRUS A/VICTORIA/210/2009 X-187 (H3N2) ANTIGEN (FORMALDEHYDE INACTIVATED)\INFLUENZA B VIRUS B/BRISBANE/60/2008 ANTIGEN (FORMALDEHYDE INACTIVATED)
     Indication: PRODUCT USED FOR UNKNOWN INDICATION
     Route: 065
  3. DEXAMETHASONE. [Concomitant]
     Active Substance: DEXAMETHASONE
     Indication: PRODUCT USED FOR UNKNOWN INDICATION
     Route: 065
  4. METOPROLOL TARTRATE. [Concomitant]
     Active Substance: METOPROLOL TARTRATE
     Indication: PRODUCT USED FOR UNKNOWN INDICATION
     Route: 065
  5. CALCIUM CARBONATE. [Concomitant]
     Active Substance: CALCIUM CARBONATE
     Indication: PRODUCT USED FOR UNKNOWN INDICATION
     Route: 065
  6. REVLIMID [Suspect]
     Active Substance: LENALIDOMIDE
     Indication: PLASMA CELL MYELOMA
     Route: 048
     Dates: start: 20120223
  7. PERCOCET [Concomitant]
     Active Substance: ACETAMINOPHEN\OXYCODONE HYDROCHLORIDE
     Indication: PRODUCT USED FOR UNKNOWN INDICATION
     Dosage: 5/325 MG
     Route: 065
  8. REVLIMID [Suspect]
     Active Substance: LENALIDOMIDE
     Route: 048
     Dates: start: 20130925
  9. FLUVIRIN NOS [Concomitant]
     Active Substance: INFLUENZA VIRUS VACCINE
     Indication: PRODUCT USED FOR UNKNOWN INDICATION
     Route: 065

REACTIONS (6)
  - Decreased appetite [Not Recovered/Not Resolved]
  - Osteoporosis [Recovering/Resolving]
  - Body height decreased [Unknown]
  - Nausea [Recovering/Resolving]
  - Insomnia [Unknown]
  - Fatigue [Recovering/Resolving]

NARRATIVE: CASE EVENT DATE: 2013
